FAERS Safety Report 7654982-5 (Version None)
Quarter: 2011Q3

REPORT INFORMATION
  Report Type: 
  Country: None (occurrence: None)
  Receive Date: 20110804
  Receipt Date: 20110722
  Transmission Date: 20111222
  Serious: Yes (Other)
  Sender: FDA-Public Use
  Company Number: AU-ELI_LILLY_AND_COMPANY-AU201107005903

PATIENT
  Sex: Female

DRUGS (1)
  1. FORTEO [Suspect]
     Indication: OSTEOPOROSIS
     Dosage: UNK, QD
     Route: 065
     Dates: start: 20101117

REACTIONS (5)
  - SKIN HAEMORRHAGE [None]
  - BLOOD CALCIUM INCREASED [None]
  - BREAST CANCER [None]
  - MEDICATION ERROR [None]
  - DYSPNOEA [None]
